FAERS Safety Report 5477046-8 (Version None)
Quarter: 2007Q3

REPORT INFORMATION
  Report Type: 
  Country: None (occurrence: None)
  Receive Date: 20070831
  Receipt Date: 20070706
  Transmission Date: 20080115
  Serious: No
  Sender: FDA-Public Use
  Company Number: US-JNJFOC-20070701777

PATIENT
  Age: 68 Year
  Sex: Male
  Weight: 75.7507 kg

DRUGS (10)
  1. DACOGEN [Suspect]
     Indication: ACUTE MYELOMONOCYTIC LEUKAEMIA
     Dosage: 37 MG, INTRAVENOUS 28 MG, INTRAVENOUS 30 MG, INTRAVENOUS 28 MG, INTRAVENOUS
     Route: 042
     Dates: start: 20070129, end: 20070202
  2. DACOGEN [Suspect]
     Indication: ACUTE MYELOMONOCYTIC LEUKAEMIA
     Dosage: 37 MG, INTRAVENOUS 28 MG, INTRAVENOUS 30 MG, INTRAVENOUS 28 MG, INTRAVENOUS
     Route: 042
     Dates: start: 20070312, end: 20070316
  3. DACOGEN [Suspect]
     Indication: ACUTE MYELOMONOCYTIC LEUKAEMIA
     Dosage: 37 MG, INTRAVENOUS 28 MG, INTRAVENOUS 30 MG, INTRAVENOUS 28 MG, INTRAVENOUS
     Route: 042
     Dates: start: 20070423, end: 20070427
  4. DACOGEN [Suspect]
     Indication: ACUTE MYELOMONOCYTIC LEUKAEMIA
     Dosage: 37 MG, INTRAVENOUS 28 MG, INTRAVENOUS 30 MG, INTRAVENOUS 28 MG, INTRAVENOUS
     Route: 042
     Dates: start: 20070611, end: 20070615
  5. TOPROL-XL [Concomitant]
  6. LEVOSTATIN (LOVASTATIN) [Concomitant]
  7. NIFEDIPINE [Concomitant]
  8. ASPIRIN [Concomitant]
  9. MULTIVITAMIN [Concomitant]
  10. EYE DROPS (ALL OTHER THERAPEUTIC PRODUCTS) [Concomitant]

REACTIONS (2)
  - BLOOD CREATININE INCREASED [None]
  - BLOOD UREA INCREASED [None]
